FAERS Safety Report 8621596-X (Version None)
Quarter: 2012Q3

REPORT INFORMATION
  Report Type: 
  Country: None (occurrence: None)
  Receive Date: 20120820
  Receipt Date: 20120820
  Transmission Date: 20120928
  Serious: Yes (Hospitalization)
  Sender: FDA-Public Use
  Company Number: None

PATIENT
  Age: 55 Year
  Sex: Male
  Weight: 75.3 kg

DRUGS (1)
  1. BEVACIZUMAB [Suspect]
     Indication: NON-SMALL CELL LUNG CANCER
     Dosage: 15MG/KG, EVERY 3 WEEKS, IV
     Route: 042
     Dates: start: 20120725

REACTIONS (5)
  - ABDOMINAL PAIN UPPER [None]
  - NIGHT SWEATS [None]
  - PYREXIA [None]
  - DIARRHOEA [None]
  - DIVERTICULUM INTESTINAL [None]
